FAERS Safety Report 5122459-7 (Version None)
Quarter: 2006Q4

REPORT INFORMATION
  Report Type: 
  Country: None (occurrence: None)
  Receive Date: 20061004
  Receipt Date: 20060919
  Transmission Date: 20070319
  Serious: Yes (Other)
  Sender: FDA-Public Use
  Company Number: CIP06002151

PATIENT
  Age: 53 Year
  Sex: Female

DRUGS (3)
  1. ACTONEL [Suspect]
     Dosage: 35 MG ONCE WEEKLY, ORAL
     Route: 048
  2. FOSAMAX [Suspect]
     Dosage: ORAL
     Route: 048
     Dates: end: 20060601
  3. WELLBUTRIN [Concomitant]

REACTIONS (2)
  - GALLBLADDER DISORDER [None]
  - GASTRIC DISORDER [None]
